FAERS Safety Report 9625467 (Version 1)
Quarter: 2013Q4

REPORT INFORMATION
  Report Type: Spontaneous
  Country: US (occurrence: None)
  Receive Date: 20131015
  Receipt Date: 20131015
  Transmission Date: 20140711
  Serious: Yes (Hospitalization)
  Sender: FDA-Public Use
  Company Number: None

PATIENT
  Age: 46 Year
  Sex: Female
  Weight: 86.7 kg

DRUGS (2)
  1. ANAKINRA [Suspect]
     Indication: PSORIATIC ARTHROPATHY
     Route: 030
  2. HUMIRA [Concomitant]

REACTIONS (1)
  - Dermatitis [None]
